FAERS Safety Report 19569633 (Version 5)
Quarter: 2021Q3

REPORT INFORMATION
  Report Type: Report from Study
  Country: PL (occurrence: PL)
  Receive Date: 20210716
  Receipt Date: 20210913
  Transmission Date: 20211014
  Serious: Yes (Hospitalization)
  Sender: FDA-Public Use
  Company Number: PL-DSJP-DSJ-2021-114581

PATIENT
  Age: 57 Year
  Sex: Female

DRUGS (12)
  1. DURVALUMAB (DS?8201A STUDY) [Suspect]
     Active Substance: DURVALUMAB
     Indication: TRIPLE NEGATIVE BREAST CANCER
     Dosage: 1500 MG, ONCE EVERY 3 WK
     Route: 042
     Dates: start: 20210413, end: 20210413
  2. PARACETAMOL [Concomitant]
     Active Substance: ACETAMINOPHEN
     Indication: BACTERIAL INFECTION
     Route: 048
     Dates: start: 20210428, end: 20210505
  3. ESCITIL [Concomitant]
     Indication: DEPRESSION
     Dosage: 10 MG
     Route: 048
  4. DURVALUMAB (DS?8201A STUDY) [Suspect]
     Active Substance: DURVALUMAB
     Dosage: 1500 MG, ONCE EVERY 3 WK
     Route: 042
     Dates: start: 20210514, end: 20210514
  5. BISOCARD [Concomitant]
     Active Substance: BISOPROLOL
     Indication: HYPERTENSION
     Dosage: 5 MG
     Route: 048
  6. EUTHYROX [Concomitant]
     Active Substance: LEVOTHYROXINE SODIUM
     Indication: DEPRESSION
     Dosage: 88 MG
     Route: 048
     Dates: start: 201803
  7. DURVALUMAB (DS?8201A STUDY) [Suspect]
     Active Substance: DURVALUMAB
     Dosage: 1500 MG, ONCE EVERY 3 WK
     Route: 042
     Dates: start: 20210623, end: 20210623
  8. DURVALUMAB (DS?8201A STUDY) [Suspect]
     Active Substance: DURVALUMAB
     Dosage: 1500 MG, ONCE EVERY 3 WK
     Route: 042
     Dates: start: 20210714, end: 20210714
  9. TRASTUZUMAB DERUXTECAN. [Suspect]
     Active Substance: TRASTUZUMAB DERUXTECAN
     Indication: TRIPLE NEGATIVE BREAST CANCER
     Dosage: 378 MG, ONCE EVERY 3 WK
     Route: 042
     Dates: start: 20210413, end: 20210804
  10. DURVALUMAB (DS?8201A STUDY) [Suspect]
     Active Substance: DURVALUMAB
     Dosage: 1500 MG, ONCE EVERY 3 WK
     Route: 042
     Dates: start: 20210602, end: 20210602
  11. DURVALUMAB (DS?8201A STUDY) [Suspect]
     Active Substance: DURVALUMAB
     Dosage: 1500 MG, ONCE EVERY 3 WK
     Route: 042
     Dates: start: 20210804, end: 20210804
  12. TRITTICO [Concomitant]
     Active Substance: TRAZODONE HYDROCHLORIDE
     Indication: DEPRESSION
     Dosage: 75 MG
     Route: 048

REACTIONS (1)
  - Pseudomonas infection [Recovered/Resolved]

NARRATIVE: CASE EVENT DATE: 20210505
